FAERS Safety Report 12275950 (Version 1)
Quarter: 2016Q2

REPORT INFORMATION
  Report Type: Spontaneous
  Country: US (occurrence: US)
  Receive Date: 20160418
  Receipt Date: 20160418
  Transmission Date: 20160815
  Serious: Yes (Life-Threatening, Other)
  Sender: FDA-Public Use
  Company Number: US-ACCORD-039668

PATIENT
  Age: 20 Year
  Sex: Male

DRUGS (3)
  1. GEMCITABINE/GEMCITABINE HYDROCHLORIDE [Suspect]
     Active Substance: GEMCITABINE\GEMCITABINE HYDROCHLORIDE
     Indication: NON-RENAL CELL CARCINOMA OF KIDNEY
     Dosage: ON DAYS 1, 8, AND 15
  2. CARBOPLATIN. [Suspect]
     Active Substance: CARBOPLATIN
     Indication: NON-RENAL CELL CARCINOMA OF KIDNEY
     Dosage: 4 MG/ML/MIN ON DAY 1
  3. PACLITAXEL/PACLITAXEL LIPOSOME [Suspect]
     Active Substance: PACLITAXEL
     Indication: NON-RENAL CELL CARCINOMA OF KIDNEY
     Dosage: ON DAYS 1, 8, AND 15

REACTIONS (7)
  - Renal impairment [Recovered/Resolved]
  - Off label use [Unknown]
  - Neutropenia [Recovered/Resolved]
  - Vertigo [Recovered/Resolved]
  - Tinnitus [Recovered/Resolved]
  - Colitis [Recovered/Resolved]
  - Ototoxicity [Recovered/Resolved]
